FAERS Safety Report 12601865 (Version 1)
Quarter: 2016Q3

REPORT INFORMATION
  Report Type: Spontaneous
  Country: US (occurrence: None)
  Receive Date: 20160727
  Receipt Date: 20160727
  Transmission Date: 20161109
  Serious: Yes (Other)
  Sender: FDA-Public Use
  Company Number: None

PATIENT
  Age: 50 Year
  Sex: Female
  Weight: 51.26 kg

DRUGS (4)
  1. BACTRIM DS [Suspect]
     Active Substance: SULFAMETHOXAZOLE\TRIMETHOPRIM
     Indication: URINARY TRACT INFECTION
     Dosage: 1/2 PILL TWICE DAILY  BY MOUTH
     Route: 048
     Dates: start: 20160517, end: 20160617
  2. VITAMIN D [Concomitant]
     Active Substance: CHOLECALCIFEROL
  3. ASPIR-LOW [Concomitant]
     Active Substance: ASPIRIN
  4. PRILOSEC [Concomitant]
     Active Substance: OMEPRAZOLE MAGNESIUM

REACTIONS (8)
  - Skin exfoliation [None]
  - Swelling [None]
  - Pain [None]
  - Contusion [None]
  - Oropharyngeal pain [None]
  - Rash papular [None]
  - Musculoskeletal stiffness [None]
  - Pyrexia [None]

NARRATIVE: CASE EVENT DATE: 20160606
